FAERS Safety Report 8043784-6 (Version None)
Quarter: 2012Q1

REPORT INFORMATION
  Report Type: 
  Country: None (occurrence: None)
  Receive Date: 20120113
  Receipt Date: 20120105
  Transmission Date: 20120608
  Serious: No
  Sender: FDA-Public Use
  Company Number: US-BIOGENIDEC-2011BI048724

PATIENT
  Age: 38 Year
  Sex: Female

DRUGS (2)
  1. TYSABRI [Suspect]
     Indication: MULTIPLE SCLEROSIS
     Route: 042
     Dates: start: 20080626
  2. AVONEX [Concomitant]
     Indication: MULTIPLE SCLEROSIS
     Route: 030
     Dates: start: 20080601

REACTIONS (6)
  - RESTLESS LEGS SYNDROME [None]
  - BONE PAIN [None]
  - FEELING ABNORMAL [None]
  - POOR VENOUS ACCESS [None]
  - NASOPHARYNGITIS [None]
  - PARAESTHESIA [None]
